FAERS Safety Report 8392212-X (Version None)
Quarter: 2012Q2

REPORT INFORMATION
  Report Type: 
  Country: None (occurrence: None)
  Receive Date: 20120529
  Receipt Date: 20120521
  Transmission Date: 20120825
  Serious: Yes (Other)
  Sender: FDA-Public Use
  Company Number: NO-BIOMARINP-002581

PATIENT
  Sex: Female
  Weight: 17.9 kg

DRUGS (3)
  1. NAGLAZYME [Suspect]
     Indication: PRODUCT USED FOR UNKNOWN INDICATION
     Route: 041
     Dates: start: 20120315
  2. CETIRIZINE HCL [Concomitant]
     Indication: PREMEDICATION
  3. TOPICAL LIDOCAINE [Concomitant]
     Indication: PREMEDICATION
     Route: 061

REACTIONS (2)
  - SUPRAVENTRICULAR TACHYCARDIA [None]
  - INFUSION RELATED REACTION [None]
